FAERS Safety Report 24531827 (Version 1)
Quarter: 2024Q4

REPORT INFORMATION
  Report Type: Spontaneous
  Country: US (occurrence: US)
  Receive Date: 20241022
  Receipt Date: 20241022
  Transmission Date: 20250115
  Serious: No
  Sender: AMGEN
  Company Number: US-AMGEN-USASP2024208144

PATIENT
  Sex: Female

DRUGS (1)
  1. RAVICTI [Suspect]
     Active Substance: GLYCEROL PHENYLBUTYRATE
     Indication: Ornithine transcarbamoylase deficiency
     Dosage: 4.5 MILLILITER, TID, (DOSAGE: 1.1 GM/ML, PACKAGING SIZE: 25 ML)
     Route: 048
     Dates: start: 20240302

REACTIONS (1)
  - Flatulence [Unknown]
